FAERS Safety Report 7399992-0 (Version None)
Quarter: 2011Q2

REPORT INFORMATION
  Report Type: 
  Country: None (occurrence: None)
  Receive Date: 20110407
  Receipt Date: 20110325
  Transmission Date: 20111010
  Serious: Yes (Other)
  Sender: FDA-Public Use
  Company Number: PHHY2011CA05626

PATIENT
  Sex: Female

DRUGS (3)
  1. ACLASTA/ZOLEDRONATE [Suspect]
     Indication: OSTEOPOROSIS
     Dosage: 5 MG, UNK
  2. CALCIUM [Concomitant]
     Dosage: 500 MG, BID
     Dates: start: 19961223
  3. VITAMIN D [Concomitant]
     Dosage: 400 IU, BID
     Dates: start: 19661223

REACTIONS (1)
  - HIP FRACTURE [None]
